FAERS Safety Report 16247577 (Version 1)
Quarter: 2019Q2

REPORT INFORMATION
  Report Type: Spontaneous
  Country: JP (occurrence: JP)
  Receive Date: 20190428
  Receipt Date: 20190428
  Transmission Date: 20190711
  Serious: Yes (Other)
  Sender: FDA-Public Use
  Company Number: JP-TEVA-2019-JP-1042076

PATIENT

DRUGS (1)
  1. E-FEN BUCCAL [Suspect]
     Active Substance: FENTANYL CITRATE
     Indication: PRODUCT USED FOR UNKNOWN INDICATION
     Route: 002

REACTIONS (2)
  - Intentional product misuse [Unknown]
  - Shock symptom [Unknown]
